FAERS Safety Report 6718720-2 (Version None)
Quarter: 2010Q2

REPORT INFORMATION
  Report Type: 
  Country: None (occurrence: None)
  Receive Date: 20100505
  Receipt Date: 20100416
  Transmission Date: 20101027
  Serious: Yes (Hospitalization)
  Sender: FDA-Public Use
  Company Number: 2010-1425

PATIENT
  Age: 74 Year
  Sex: Female

DRUGS (11)
  1. APO-GO AMPOULES (APO-GO) (APOMORPHINE HYDROCHLORIDE) (APOMORPHINEHYDRO [Suspect]
     Indication: PARKINSON'S DISEASE
     Dosage: (5 MG, 1 IN 1 HR), SUBCUTANEOUS (5.5 MG, 1 IN 1 HR), SUBCUTANEOUS
     Route: 058
     Dates: start: 20070801, end: 20080514
  2. APO-GO AMPOULES (APO-GO) (APOMORPHINE HYDROCHLORIDE) (APOMORPHINEHYDRO [Suspect]
     Indication: PARKINSON'S DISEASE
     Dosage: (5 MG, 1 IN 1 HR), SUBCUTANEOUS (5.5 MG, 1 IN 1 HR), SUBCUTANEOUS
     Route: 058
     Dates: start: 20080514, end: 20100318
  3. APO-GO AMPOULES (APO-GO) (APOMORPHINE HYDROCHLORIDE) (APOMORPHINEHYDRO [Suspect]
     Indication: PARKINSON'S DISEASE
     Dosage: (5 MG, 1 IN 1 HR), SUBCUTANEOUS (5.5 MG, 1 IN 1 HR), SUBCUTANEOUS
     Route: 058
     Dates: start: 20100318, end: 20100420
  4. DOMPERIDONE (DOMPERIDONE) [Concomitant]
  5. AMANTADINE HCL [Concomitant]
  6. ISICOM 100 (SINEMET) [Concomitant]
  7. LEVOCOMP RET 200 (SINEMET) [Concomitant]
  8. MADOPAR LT (MADOPAR /00349201/) [Concomitant]
  9. CLARIUM (PIRIBEDIL) [Concomitant]
  10. LYRICA [Concomitant]
  11. CLONAZEPAM [Concomitant]

REACTIONS (4)
  - GENERAL PHYSICAL CONDITION ABNORMAL [None]
  - HYPERKINESIA [None]
  - INJECTION SITE PAIN [None]
  - NODULE [None]
